FAERS Safety Report 8257069-6 (Version None)
Quarter: 2012Q2

REPORT INFORMATION
  Report Type: 
  Country: None (occurrence: None)
  Receive Date: 20120403
  Receipt Date: 20120329
  Transmission Date: 20120825
  Serious: Yes (Hospitalization)
  Sender: FDA-Public Use
  Company Number: JP-GLAXOSMITHKLINE-B0792766A

PATIENT
  Age: 61 Year
  Sex: Female
  Weight: 55 kg

DRUGS (13)
  1. SELBEX [Concomitant]
     Route: 048
  2. RAMELTEON [Suspect]
     Dosage: .3MG PER DAY
     Route: 042
     Dates: start: 20120223, end: 20120223
  3. ZANTAC [Suspect]
     Dosage: 50MG PER DAY
     Route: 042
     Dates: start: 20120223, end: 20120223
  4. VENA [Concomitant]
     Route: 048
  5. SEROTONE [Concomitant]
  6. ZANTAC [Suspect]
     Indication: PROPHYLAXIS
     Dosage: 50MG PER DAY
     Route: 042
     Dates: start: 20100614, end: 20100614
  7. DEXAMETHASONE SODIUM PHOSPHATE [Suspect]
     Dosage: 6.6MG PER DAY
     Route: 042
     Dates: start: 20120223, end: 20120223
  8. RAMELTEON [Suspect]
     Indication: PROPHYLAXIS
     Dosage: .3MG PER DAY
     Route: 042
     Dates: start: 20100614, end: 20100614
  9. PARAPLATIN AQ [Concomitant]
     Route: 042
     Dates: start: 20100614
  10. ROXATIDINE ACETATE HCL [Concomitant]
  11. DEXAMETHASONE SODIUM PHOSPHATE [Suspect]
     Indication: PROPHYLAXIS
     Dosage: 6.6MG PER DAY
     Route: 042
     Dates: start: 20100614, end: 20100614
  12. BETAMETHASONE [Concomitant]
  13. TAXOL [Concomitant]
     Route: 042
     Dates: start: 20100614

REACTIONS (13)
  - FLUSHING [None]
  - ANAPHYLACTIC SHOCK [None]
  - COUGH [None]
  - DYSPNOEA [None]
  - PRURITUS [None]
  - CHEST DISCOMFORT [None]
  - HOT FLUSH [None]
  - TOOTHACHE [None]
  - ERYTHEMA [None]
  - OEDEMA PERIPHERAL [None]
  - BLOOD PRESSURE DECREASED [None]
  - TACHYCARDIA [None]
  - HEADACHE [None]
